FAERS Safety Report 23410454 (Version 1)
Quarter: 2024Q1

REPORT INFORMATION
  Report Type: Spontaneous
  Country: US (occurrence: US)
  Receive Date: 20240117
  Receipt Date: 20240117
  Transmission Date: 20240410
  Serious: Yes (Other)
  Sender: FDA-Public Use
  Company Number: US-PFIZER INC-PV202400006230

PATIENT
  Age: 62 Year
  Sex: Female

DRUGS (1)
  1. SPIRONOLACTONE [Suspect]
     Active Substance: SPIRONOLACTONE
     Dosage: UNK

REACTIONS (9)
  - Hyperkalaemia [Unknown]
  - Hypotension [Recovered/Resolved]
  - Dizziness [Unknown]
  - Pain [Unknown]
  - Influenza [Unknown]
  - Cough [Unknown]
  - Muscle spasms [Unknown]
  - Glomerular filtration rate decreased [Unknown]
  - Fatigue [Unknown]
